FAERS Safety Report 9485330 (Version 2)
Quarter: 2013Q3

REPORT INFORMATION
  Report Type: Spontaneous
  Country: FR (occurrence: FR)
  Receive Date: 20130828
  Receipt Date: 20130828
  Transmission Date: 20140515
  Serious: Yes (Disabling)
  Sender: FDA-Public Use
  Company Number: FR-ROCHE-1225890

PATIENT
  Age: 66 Year
  Sex: Female
  Weight: 46 kg

DRUGS (4)
  1. CELLCEPT [Suspect]
     Indication: PRODUCT USED FOR UNKNOWN INDICATION
     Dosage: COATED TABLET
     Route: 048
     Dates: start: 20130425, end: 20130620
  2. SOLUPRED (FRANCE) [Suspect]
     Indication: AUTOIMMUNE HEPATITIS
     Route: 048
     Dates: start: 20130311
  3. CALCITE D [Concomitant]
     Route: 048
     Dates: start: 20130310
  4. CONTRAMAL [Concomitant]
     Route: 065

REACTIONS (3)
  - Back pain [Recovering/Resolving]
  - Depressed mood [Not Recovered/Not Resolved]
  - Feeling cold [Not Recovered/Not Resolved]
